FAERS Safety Report 5319825-3 (Version None)
Quarter: 2007Q2

REPORT INFORMATION
  Report Type: 
  Country: None (occurrence: None)
  Receive Date: 20070509
  Receipt Date: 20070427
  Transmission Date: 20071010
  Serious: Yes (Other)
  Sender: FDA-Public Use
  Company Number: PHEH2007US04439

PATIENT
  Age: 75 Year
  Sex: Female

DRUGS (5)
  1. ZELNORM [Suspect]
     Indication: CONSTIPATION
     Dosage: 6 MG, ONCE/SINGLE
     Route: 048
     Dates: start: 20070404, end: 20070404
  2. NITROSTAT [Concomitant]
     Indication: CHEST PAIN
  3. MICRONASE [Concomitant]
     Indication: DIABETES MELLITUS
     Dosage: UNK, PRN
  4. ASPIRIN [Concomitant]
     Indication: ANGINA PECTORIS
     Dosage: UNK, PRN
  5. POTASSIUM ACETATE [Concomitant]
     Indication: ANGINA PECTORIS
     Dosage: UNK, PRN

REACTIONS (8)
  - ANGINA PECTORIS [None]
  - BLOOD PRESSURE SYSTOLIC INCREASED [None]
  - CARDIAC DISORDER [None]
  - CHEST PAIN [None]
  - FATIGUE [None]
  - NERVOUSNESS [None]
  - PRURITUS GENERALISED [None]
  - TREMOR [None]
